FAERS Safety Report 9652086 (Version 1)
Quarter: 2013Q4

REPORT INFORMATION
  Report Type: Spontaneous
  Country: FR (occurrence: FR)
  Receive Date: 20131029
  Receipt Date: 20131029
  Transmission Date: 20140711
  Serious: Yes (Other)
  Sender: FDA-Public Use
  Company Number: FR-PFIZER INC-2013304064

PATIENT
  Age: 50 Year
  Sex: Male

DRUGS (1)
  1. CRIZOTINIB [Suspect]
     Dosage: 250 MG, TWICE DAILY

REACTIONS (2)
  - Cholestasis [Unknown]
  - Leukocytosis [Unknown]
